FAERS Safety Report 8020018-X (Version None)
Quarter: 2012Q1

REPORT INFORMATION
  Report Type: 
  Country: None (occurrence: None)
  Receive Date: 20120103
  Receipt Date: 20111222
  Transmission Date: 20120608
  Serious: Yes (Hospitalization)
  Sender: FDA-Public Use
  Company Number: FR-CEPHALON-2011005973

PATIENT
  Age: 72 Year
  Sex: Female

DRUGS (5)
  1. BENDAMUSTINE HCL [Suspect]
     Indication: CHRONIC LYMPHOCYTIC LEUKAEMIA
     Route: 041
     Dates: start: 20110801
  2. HYDROCORTISONE HEMISUCCINATE [Concomitant]
     Indication: PREMEDICATION
  3. POLARAMINE [Concomitant]
     Indication: PREMEDICATION
  4. MABTHERA [Concomitant]
     Dates: start: 20110801, end: 20111001
  5. BETAMETHASONE DEXCHLORPHENIRAMINE [Concomitant]
     Indication: PREMEDICATION

REACTIONS (3)
  - RASH MORBILLIFORM [None]
  - HYPERSENSITIVITY [None]
  - PYREXIA [None]
